FAERS Safety Report 4413208-6 (Version None)
Quarter: 2004Q3

REPORT INFORMATION
  Report Type: 
  Country: None (occurrence: None)
  Receive Date: 20040802
  Receipt Date: 20040722
  Transmission Date: 20050211
  Serious: Yes (Life-Threatening, Hospitalization)
  Sender: FDA-Public Use
  Company Number: PHBS2004JP09703

PATIENT
  Age: 62 Year
  Sex: Male

DRUGS (12)
  1. LUDIOMIL [Suspect]
     Indication: BIPOLAR I DISORDER
     Dosage: 30 MG/D
     Route: 048
  2. LITHIUM CARBONATE [Suspect]
     Dosage: 800 MG/D
     Route: 048
  3. LEVOMEPROMAZINE MALEATE [Suspect]
     Dosage: 50 MG/D
     Route: 048
  4. FLUNITRAZEPAM [Suspect]
     Dosage: 2 MG/D
     Route: 048
  5. NITRAZEPAM [Suspect]
     Dosage: 10 MG/D
     Route: 048
  6. TETRAMIDE [Suspect]
     Dosage: 10 MG/D
     Route: 048
  7. TRIAZOLAM [Concomitant]
     Dosage: 0.5 MG/D
     Route: 048
  8. GEFARNATE [Concomitant]
     Dosage: 150 MG/D
     Route: 048
  9. MAGNESIUM [Concomitant]
     Dosage: 3 G/D
     Route: 048
  10. URSO [Concomitant]
     Dosage: 300 MG/D
     Route: 048
  11. PROHEPARUM [Concomitant]
     Dosage: 3 DF/D
     Route: 048
  12. SENNOSIDE A [Concomitant]
     Dosage: 48 MG/D
     Route: 048

REACTIONS (2)
  - CHOLECYSTITIS [None]
  - NEUROLEPTIC MALIGNANT SYNDROME [None]
